FAERS Safety Report 4322371-7 (Version None)
Quarter: 2004Q1

REPORT INFORMATION
  Report Type: 
  Country: None (occurrence: None)
  Receive Date: 20040319
  Receipt Date: 20040310
  Transmission Date: 20041129
  Serious: Yes (Life-Threatening, Hospitalization)
  Sender: FDA-Public Use
  Company Number: 2004EU000538

PATIENT
  Age: 29 Year
  Sex: Female

DRUGS (9)
  1. PROGRAF [Suspect]
     Indication: RENAL TRANSPLANT
     Dosage: UNKNOWN/D, ORAL
     Route: 048
  2. TAREG (VALSARTAN) [Suspect]
     Dosage: 2.00 DF, UID/QD, ORAL
     Route: 048
     Dates: start: 20030315, end: 20040114
  3. ZOMIG [Suspect]
     Dosage: UNKNOWN/D, ORAL
     Route: 048
  4. NEORECORMON (EPOETIN BETA) [Suspect]
     Dosage: UNKNOWN/D
  5. BUMETANIDE [Suspect]
     Dosage: UNKNOWN/D, ORAL
     Route: 048
  6. ATARAX [Concomitant]
  7. PROPRANOLOL [Concomitant]
  8. ACETAMINOPHEN [Concomitant]
  9. FOLIC ACID [Concomitant]

REACTIONS (9)
  - ABORTION INDUCED [None]
  - COMPLICATIONS OF MATERNAL EXPOSURE TO THERAPEUTIC DRUGS [None]
  - CONDITION AGGRAVATED [None]
  - HYPERTENSION [None]
  - MATERNAL DRUGS AFFECTING FOETUS [None]
  - OLIGOHYDRAMNIOS [None]
  - PLACENTAL INSUFFICIENCY [None]
  - PREGNANCY [None]
  - RENAL FAILURE [None]
